FAERS Safety Report 5156781-5 (Version None)
Quarter: 2006Q4

REPORT INFORMATION
  Report Type: 
  Country: None (occurrence: None)
  Receive Date: 20061115
  Receipt Date: 20061101
  Transmission Date: 20070319
  Serious: Yes (Hospitalization, Disabling)
  Sender: FDA-Public Use
  Company Number: 062-C5013-06110094

PATIENT
  Age: 56 Year
  Sex: Female
  Weight: 52 kg

DRUGS (19)
  1. REVLIMID [Suspect]
     Indication: MULTIPLE MYELOMA
     Dates: start: 20060728
  2. ASPIRIN [Suspect]
     Indication: DRUG USE FOR UNKNOWN INDICATION
     Dates: start: 20060908, end: 20061028
  3. VOMEX (DIMENHYDRINATE) [Concomitant]
  4. SPIRIVA [Concomitant]
  5. CIPROBAY (CIPROFLOXACIN HYDROCHLORIDE) (250) [Concomitant]
  6. MG VERLA [Concomitant]
  7. KEPINOL FORTE (BACTRIM) [Concomitant]
  8. ACICLOVIR (ACIVLOVIR) (400) [Concomitant]
  9. BONDRONAT (6 MILLIGRAM) [Concomitant]
  10. PANTOZOL (PANTOPRAZOLE SODIUM) (40) [Concomitant]
  11. SAROTEN (AMITRIPTYLINE HYDROCHLORIDE) (25) [Concomitant]
  12. MST RETART (MORPHINE SULFATE) (30 MILLIGRAM) [Concomitant]
  13. PASPERTIN(METOCLOPRAMIDE HYDROCHLORIDE) (0 DROPS)) [Concomitant]
  14. SYMBICORT TH 60/45 (SYMBICORT TURBUHALER ^DRACO^) (INHALANT) [Concomitant]
  15. TAVOR (LORAZEPAM) (1 MILLIGRAM) [Concomitant]
  16. LAXOFALK (1 DOSAGE FORMS) [Concomitant]
  17. FORTECORTIN (DEXAMETHASONE) (4 MILLIGRAM) [Concomitant]
  18. AUGMENTINE 875/125 (AUGMENTINE) [Concomitant]
  19. SEVREDOL (MORPHINE SULFATE) (20) [Concomitant]

REACTIONS (7)
  - DISEASE PROGRESSION [None]
  - DYSPNOEA [None]
  - EOSINOPHILIA [None]
  - EYE OEDEMA [None]
  - EYE PAIN [None]
  - LEUKOCYTOSIS [None]
  - LUNG DISORDER [None]
